FAERS Safety Report 7330761-3 (Version None)
Quarter: 2011Q1

REPORT INFORMATION
  Report Type: 
  Country: None (occurrence: None)
  Receive Date: 20110225
  Receipt Date: 20110225
  Transmission Date: 20110831
  Serious: Yes (Life-Threatening, Hospitalization)
  Sender: FDA-Public Use
  Company Number: None

PATIENT
  Age: 73 Year
  Sex: Male
  Weight: 94.7 kg

DRUGS (2)
  1. ACETAZOLAMIDE [Suspect]
     Indication: CARDIAC FAILURE CONGESTIVE
     Dosage: 250 MG ONCE IV
     Route: 042
     Dates: start: 20110127, end: 20110128
  2. ACETAZOLAMIDE [Suspect]
     Indication: OEDEMA
     Dosage: 250 MG ONCE IV
     Route: 042
     Dates: start: 20110127, end: 20110128

REACTIONS (1)
  - RESPIRATORY DISTRESS [None]
